FAERS Safety Report 5972849-5 (Version None)
Quarter: 2008Q4

REPORT INFORMATION
  Report Type: 
  Country: None (occurrence: None)
  Receive Date: 20081201
  Receipt Date: 20080110
  Transmission Date: 20090506
  Serious: No
  Sender: FDA-Public Use
  Company Number: US-AMGEN-KDL260137

PATIENT
  Sex: Male

DRUGS (3)
  1. ENBREL [Suspect]
     Indication: ANKYLOSING SPONDYLITIS
     Route: 058
     Dates: start: 20050101
  2. ENBREL [Suspect]
     Indication: PSORIATIC ARTHROPATHY
  3. ENBREL [Suspect]
     Indication: PSORIASIS

REACTIONS (6)
  - ANKYLOSING SPONDYLITIS [None]
  - ARTHRALGIA [None]
  - FUNGAL INFECTION [None]
  - MUSCULOSKELETAL STIFFNESS [None]
  - PRURITUS [None]
  - RASH [None]
